FAERS Safety Report 13449410 (Version 1)
Quarter: 2017Q2

REPORT INFORMATION
  Report Type: Other
  Country: IT (occurrence: IT)
  Receive Date: 20170417
  Receipt Date: 20170417
  Transmission Date: 20170830
  Serious: Yes (Other)
  Sender: FDA-Public Use
  Company Number: IT-LABORATOIRE HRA PHARMA-1065438

PATIENT
  Age: 17 Year
  Sex: Female

DRUGS (1)
  1. ELLA [Suspect]
     Active Substance: ULIPRISTAL ACETATE
     Route: 048
     Dates: start: 20170129, end: 20170129

REACTIONS (3)
  - Oedema peripheral [None]
  - Eyelid oedema [None]
  - Urticaria [None]

NARRATIVE: CASE EVENT DATE: 20170129
